FAERS Safety Report 10268800 (Version 1)
Quarter: 2014Q2

REPORT INFORMATION
  Report Type: Spontaneous
  Country: US (occurrence: US)
  Receive Date: 20140630
  Receipt Date: 20140630
  Transmission Date: 20141212
  Serious: Yes (Hospitalization)
  Sender: FDA-Public Use
  Company Number: US-GLAXOSMITHKLINE-A1078260A

PATIENT
  Age: 55 Year
  Sex: Female

DRUGS (12)
  1. FLOVENT [Suspect]
     Indication: ASTHMA
     Dosage: 2PUFF PER DAY
     Route: 055
     Dates: start: 201402
  2. SYNTHROID [Concomitant]
  3. LEXAPRO [Concomitant]
  4. NEXIUM [Concomitant]
  5. PRAVASTATIN [Concomitant]
  6. GLIMEPIRIDE [Concomitant]
  7. HUMALOG [Concomitant]
  8. BACTROBAN [Concomitant]
  9. UNKNOWN MEDICATION [Concomitant]
  10. ALBUTEROL [Concomitant]
  11. VENTOLIN [Concomitant]
  12. VITAMIN D2 [Concomitant]

REACTIONS (5)
  - Stent placement [Unknown]
  - Seroma [Not Recovered/Not Resolved]
  - Abdominal pain [Not Recovered/Not Resolved]
  - Anaemia [Not Recovered/Not Resolved]
  - Device misuse [Not Recovered/Not Resolved]
